FAERS Safety Report 9660985 (Version 4)
Quarter: 2013Q4

REPORT INFORMATION
  Report Type: Spontaneous
  Country: US (occurrence: US)
  Receive Date: 20131031
  Receipt Date: 20131218
  Transmission Date: 20140711
  Serious: Yes (Death, Hospitalization, Other)
  Sender: FDA-Public Use
  Company Number: US-GILEAD-2013-0086342

PATIENT
  Age: 50 Year
  Sex: Female

DRUGS (4)
  1. LETAIRIS [Suspect]
     Indication: PULMONARY ARTERIAL HYPERTENSION
     Dosage: 5 MG, UNK
     Route: 048
     Dates: start: 20130910
  2. REMODULIN [Concomitant]
     Dosage: UNK
     Dates: start: 2001
  3. WARFARIN [Concomitant]
     Dosage: UNK
     Dates: start: 2001
  4. TYVASO [Concomitant]
     Route: 058

REACTIONS (2)
  - Death [Fatal]
  - Hypotension [Fatal]
